FAERS Safety Report 16394260 (Version 2)
Quarter: 2019Q2

REPORT INFORMATION
  Report Type: Report from Study
  Country: MX (occurrence: MX)
  Receive Date: 20190605
  Receipt Date: 20190618
  Transmission Date: 20190711
  Serious: No
  Sender: FDA-Public Use
  Company Number: PHHY2019MX038605

PATIENT
  Sex: Female
  Weight: 75 kg

DRUGS (5)
  1. CONCOR [Concomitant]
     Active Substance: BISOPROLOL FUMARATE
     Indication: HYPERTENSION
     Dosage: 1 DF, QD
     Route: 048
  2. APROVEL [Concomitant]
     Active Substance: IRBESARTAN
     Indication: HYPERTENSION
     Dosage: 1 DF, QD
     Route: 048
  3. GALVUS MET [Suspect]
     Active Substance: METFORMIN HYDROCHLORIDE\VILDAGLIPTIN
     Indication: DIABETES MELLITUS
     Dosage: 1.5 DF (METFORMIN 500 MG, VILDAGLIPTIN 50 MG), QD (1 TABLET IN THE MORNING 1/2 IN THE NIGHT)
     Route: 048
  4. LEXOTAN [Concomitant]
     Active Substance: BROMAZEPAM
     Indication: SLEEP DISORDER
     Dosage: 1 DF (3 MG), QD (1 TABLET AT NIGHT))
     Route: 048
  5. ZYLOPRIM [Concomitant]
     Active Substance: ALLOPURINOL
     Indication: HYPERTENSION
     Dosage: 2 DF, QD
     Route: 048

REACTIONS (3)
  - Product prescribing error [Unknown]
  - Weight decreased [Unknown]
  - Wrong technique in product usage process [Unknown]

NARRATIVE: CASE EVENT DATE: 2014
